FAERS Safety Report 23392513 (Version 2)
Quarter: 2024Q1

REPORT INFORMATION
  Report Type: Report from Study
  Country: IT (occurrence: IT)
  Receive Date: 20240111
  Receipt Date: 20240117
  Transmission Date: 20240410
  Serious: Yes (Other)
  Sender: FDA-Public Use
  Company Number: None

PATIENT
  Age: 63 Year
  Sex: Male
  Weight: 100 kg

DRUGS (6)
  1. PACLITAXEL [Suspect]
     Active Substance: PACLITAXEL
     Indication: Oesophageal carcinoma
     Dosage: 100 MILLIGRAM, QW (START OF THERAPY)
     Route: 042
     Dates: start: 20230918, end: 20230918
  2. PACLITAXEL [Suspect]
     Active Substance: PACLITAXEL
     Dosage: 100 MILLIGRAM, QW (WEEK 3)
     Route: 042
     Dates: start: 20231002, end: 20231002
  3. PACLITAXEL [Suspect]
     Active Substance: PACLITAXEL
     Dosage: 100 MILLIGRAM, 5 CYCLE (4 WEEK)
     Route: 042
     Dates: start: 20231009, end: 20231009
  4. CARBOPLATIN [Suspect]
     Active Substance: CARBOPLATIN
     Indication: Oesophageal carcinoma
     Dosage: 300 MILLIGRAM, QW (START OF THERAPY)
     Route: 042
     Dates: start: 20230918, end: 20230918
  5. CARBOPLATIN [Suspect]
     Active Substance: CARBOPLATIN
     Dosage: 300 MILLIGRAM, QW (WEEK 3)
     Route: 042
     Dates: start: 20231002, end: 20231002
  6. CARBOPLATIN [Suspect]
     Active Substance: CARBOPLATIN
     Dosage: 300 MILLIGRAM, 5 CYCLE (4 WEEK)
     Route: 042
     Dates: start: 20231009, end: 20231023

REACTIONS (8)
  - Thrombocytopenia [Recovering/Resolving]
  - Oesophagitis [Recovering/Resolving]
  - Somnolence [Recovering/Resolving]
  - Hyperglycaemia [Recovering/Resolving]
  - Oedema [Recovering/Resolving]
  - Asthenia [Recovering/Resolving]
  - Hypotension [Recovering/Resolving]
  - Off label use [Recovering/Resolving]

NARRATIVE: CASE EVENT DATE: 20231009
